FAERS Safety Report 8303965-0 (Version None)
Quarter: 2012Q2

REPORT INFORMATION
  Report Type: 
  Country: None (occurrence: None)
  Receive Date: 20120423
  Receipt Date: 20120420
  Transmission Date: 20120825
  Serious: Yes (Death, Hospitalization)
  Sender: FDA-Public Use
  Company Number: PHHY2012AU025092

PATIENT
  Sex: Female

DRUGS (10)
  1. ZOLEDRONOC ACID [Suspect]
     Dosage: 5 MG, UNK
     Route: 042
     Dates: start: 20110314
  2. ADALAT [Concomitant]
     Dosage: 10 MG, BID
  3. CALCIUM CARBONATE [Concomitant]
     Dosage: 1 DF, UNK
  4. VITAMIN D [Concomitant]
     Dosage: 2 DF, UNK
  5. LYRICA [Concomitant]
     Dosage: 1 DF, UNK
  6. INDAPAMIDE [Concomitant]
     Dosage: 1 DF, UNK
  7. ENDEP [Concomitant]
     Dosage: 1 DF, UNK
  8. LEVOTHYROXINE SODIUM [Concomitant]
     Dosage: 1 MANE A.C.
  9. ZOLEDRONOC ACID [Suspect]
     Indication: OSTEOPOROSIS
     Dosage: 5 MG, UNK
     Route: 042
     Dates: start: 20100324
  10. ZOLEDRONOC ACID [Suspect]
     Dosage: 5 MG, UNK
     Route: 042

REACTIONS (6)
  - BACK PAIN [None]
  - FALL [None]
  - MALAISE [None]
  - DEATH [None]
  - TREMOR [None]
  - LACERATION [None]
